FAERS Safety Report 16539333 (Version 2)
Quarter: 2019Q3

REPORT INFORMATION
  Report Type: Spontaneous
  Country: US (occurrence: US)
  Receive Date: 20190708
  Receipt Date: 20190927
  Transmission Date: 20191004
  Serious: Yes (Death)
  Sender: FDA-Public Use
  Company Number: US-PFIZER INC-2019284690

PATIENT
  Age: 68 Year
  Sex: Male
  Weight: 81.63 kg

DRUGS (2)
  1. CAPECITABINE. [Concomitant]
     Active Substance: CAPECITABINE
     Dosage: 2500 MG, CYCLIC (14 DAYS ON, 7 DAYS OFF )
  2. OXALIPLATIN. [Suspect]
     Active Substance: OXALIPLATIN
     Indication: RECTAL CANCER METASTATIC
     Dosage: UNK
     Route: 042
     Dates: start: 201609, end: 201701

REACTIONS (2)
  - Temperature intolerance [Unknown]
  - Thermohyperaesthesia [Unknown]

NARRATIVE: CASE EVENT DATE: 201609
